FAERS Safety Report 25764340 (Version 1)
Quarter: 2025Q3

REPORT INFORMATION
  Report Type: Spontaneous
  Country: US (occurrence: US)
  Receive Date: 20250905
  Receipt Date: 20250905
  Transmission Date: 20251021
  Serious: No
  Sender: DOMPE FARMACEUTICI
  Company Number: US-FARMAPROD-202412-4239

PATIENT
  Sex: Female
  Weight: 53.8 kg

DRUGS (15)
  1. OXERVATE [Suspect]
     Active Substance: CENEGERMIN-BKBJ
     Indication: Neurotrophic keratopathy
     Route: 047
     Dates: start: 20241209
  2. OXERVATE [Suspect]
     Active Substance: CENEGERMIN-BKBJ
  3. INSULIN LISPRO [Concomitant]
     Active Substance: INSULIN LISPRO
  4. DORZOLAMIDE AND TIMOLOL [Concomitant]
     Active Substance: DORZOLAMIDE HYDROCHLORIDE\TIMOLOL MALEATE
  5. ROCKLATAN [Concomitant]
     Active Substance: LATANOPROST\NETARSUDIL MESYLATE
  6. NYSTATIN-TRIAMCINOLONE [Concomitant]
  7. ASPIRIN [Concomitant]
     Active Substance: ASPIRIN
  8. RESTASIS [Concomitant]
     Active Substance: CYCLOSPORINE
  9. BRIMONIDINE TARTRATE [Concomitant]
     Active Substance: BRIMONIDINE TARTRATE
  10. DEXAMETHASONE SODIUM PHOSPHATE [Concomitant]
     Active Substance: DEXAMETHASONE SODIUM PHOSPHATE
  11. RAMIPRIL [Concomitant]
     Active Substance: RAMIPRIL
  12. TRAVOPROST [Concomitant]
     Active Substance: TRAVOPROST
  13. SODIUM CHLORIDE [Concomitant]
     Active Substance: SODIUM CHLORIDE
  14. SIMVASTATIN [Concomitant]
     Active Substance: SIMVASTATIN
  15. FLUOROMETHOLONE [Concomitant]
     Active Substance: FLUOROMETHOLONE

REACTIONS (5)
  - Vision blurred [Not Recovered/Not Resolved]
  - Apraxia [Unknown]
  - Eye irritation [Unknown]
  - Eye pain [Unknown]
  - Visual impairment [Unknown]
